FAERS Safety Report 6452736-9 (Version None)
Quarter: 2009Q4

REPORT INFORMATION
  Report Type: 
  Country: None (occurrence: None)
  Receive Date: 20091116
  Receipt Date: 20091102
  Transmission Date: 20100525
  Serious: Yes (Hospitalization)
  Sender: FDA-Public Use
  Company Number: 8054247

PATIENT
  Age: 11 Year
  Sex: Female

DRUGS (2)
  1. KEPPRA [Suspect]
  2. KEPPRA [Suspect]
     Dates: start: 20091029

REACTIONS (5)
  - APATHY [None]
  - COMA [None]
  - CONVULSION [None]
  - HEART RATE DECREASED [None]
  - HEART RATE INCREASED [None]
